FAERS Safety Report 8312552-X (Version None)
Quarter: 2012Q2

REPORT INFORMATION
  Report Type: 
  Country: None (occurrence: None)
  Receive Date: 20120425
  Receipt Date: 20120412
  Transmission Date: 20120825
  Serious: Yes (Life-Threatening, Hospitalization)
  Sender: FDA-Public Use
  Company Number: DE-AMGEN-DEUSP2012024346

PATIENT
  Age: 76 Year
  Sex: Male
  Weight: 72 kg

DRUGS (4)
  1. METHOTREXATE SODIUM [Concomitant]
     Dosage: UNK
  2. ENBREL [Suspect]
     Indication: PSORIASIS
     Dosage: 25 MG, 2X/DAY
     Route: 058
     Dates: start: 20090817
  3. PREDNISOLONE [Suspect]
     Indication: RHEUMATOID ARTHRITIS
     Dosage: 5-10 MG MG, 1X/DAY
     Route: 048
     Dates: start: 19931201
  4. ENBREL [Suspect]
     Indication: RHEUMATOID ARTHRITIS
     Dosage: 25 MG, 2X/DAY
     Route: 058
     Dates: start: 20030320, end: 20090611

REACTIONS (3)
  - METASTASES TO LUNG [None]
  - BRONCHIAL CARCINOMA [None]
  - SQUAMOUS CELL CARCINOMA [None]
